FAERS Safety Report 9590999 (Version 1)
Quarter: 2013Q4

REPORT INFORMATION
  Report Type: Spontaneous
  Country: GB (occurrence: GB)
  Receive Date: 20131003
  Receipt Date: 20131003
  Transmission Date: 20140711
  Serious: Yes (Other)
  Sender: FDA-Public Use
  Company Number: GB-MYLANLABS-2013S1021477

PATIENT
  Age: 56 Year
  Sex: Female

DRUGS (1)
  1. NITROFURANTOIN [Suspect]
     Indication: PROPHYLAXIS URINARY TRACT INFECTION
     Route: 065

REACTIONS (6)
  - Pulmonary toxicity [Recovering/Resolving]
  - Dyspnoea [Recovered/Resolved]
  - Cough [Recovered/Resolved]
  - Tachypnoea [Recovered/Resolved]
  - Rales [Recovered/Resolved]
  - Computerised tomogram thorax abnormal [Recovering/Resolving]
